FAERS Safety Report 11074007 (Version 2)
Quarter: 2015Q2

REPORT INFORMATION
  Report Type: Spontaneous
  Country: DE (occurrence: DE)
  Receive Date: 20150429
  Receipt Date: 20150518
  Transmission Date: 20150821
  Serious: Yes (Other)
  Sender: FDA-Public Use
  Company Number: DE-PFIZER INC-2015093259

PATIENT
  Age: 72 Year
  Sex: Male

DRUGS (7)
  1. MARCUMAR [Concomitant]
     Active Substance: PHENPROCOUMON
     Dosage: AS NEEDED ACCORDING TO INR
  2. LATANOPROST PFIZER [Suspect]
     Active Substance: LATANOPROST
     Indication: OCULAR HYPERTENSION
     Dosage: 1 DF, 1X/DAY, IN THE EVENING
  3. METFORMIN [Concomitant]
     Active Substance: METFORMIN HYDROCHLORIDE
     Dosage: 500 MG, 2X/DAY, IN THE MORNING AND IN THE EVENING AFTER MEAL
  4. RAMIPRIL COMP ABZ [Concomitant]
     Dosage: 5/12.5 MG 1 IN THE MORNING
  5. AMLODIPINE BESILATE DEXCEL [Concomitant]
     Dosage: 10 MG, DAILY, HALF IN THE MORNING, HALF IN THE EVENING
  6. SIMVASTATIN. [Concomitant]
     Active Substance: SIMVASTATIN
     Dosage: 20 MG, 1X/DAY, IN THE EVENING
  7. RAMILICH [Concomitant]
     Active Substance: RAMIPRIL
     Dosage: 5 MG, 1X/DAY, IN THE EVENING

REACTIONS (1)
  - Intraocular pressure increased [Recovered/Resolved]
